FAERS Safety Report 10068635 (Version 1)
Quarter: 2014Q2

REPORT INFORMATION
  Report Type: Spontaneous
  Country: BE (occurrence: BE)
  Receive Date: 20140409
  Receipt Date: 20140409
  Transmission Date: 20141212
  Serious: Yes (Life-Threatening)
  Sender: FDA-Public Use
  Company Number: BE-GLAXOSMITHKLINE-B0978904A

PATIENT
  Sex: Male

DRUGS (2)
  1. ZANTAC [Suspect]
     Indication: PRODUCT USED FOR UNKNOWN INDICATION
     Route: 042
  2. MEDROL [Concomitant]
     Dosage: 4MG TWICE PER DAY

REACTIONS (5)
  - Hypersensitivity [Recovered/Resolved]
  - Eye irritation [Unknown]
  - Lacrimation increased [Unknown]
  - Dyspnoea [Unknown]
  - Erythema [Unknown]
